FAERS Safety Report 8348267-1 (Version None)
Quarter: 2012Q2

REPORT INFORMATION
  Report Type: 
  Country: None (occurrence: None)
  Receive Date: 20120509
  Receipt Date: 20120503
  Transmission Date: 20120825
  Serious: No
  Sender: FDA-Public Use
  Company Number: US-PFIZER INC-2012109230

PATIENT
  Sex: Male
  Weight: 72.562 kg

DRUGS (6)
  1. CARDURA [Concomitant]
     Indication: PROSTATOMEGALY
  2. NIASPAN [Concomitant]
     Indication: BLOOD CHOLESTEROL ABNORMAL
     Dosage: 500 MG, DAILY
     Route: 048
  3. LIPITOR [Concomitant]
     Indication: BLOOD CHOLESTEROL ABNORMAL
     Dosage: 20 MG, DAILY
     Route: 048
  4. CARDURA [Concomitant]
     Indication: BLOOD PRESSURE ABNORMAL
     Dosage: 4 MG, DAILY
     Route: 048
  5. LATANOPROST [Suspect]
     Indication: GLAUCOMA
     Dosage: 1 GTT, 1X/DAY, EACH EYE
     Route: 047
     Dates: start: 20120101
  6. ACETYLSALICYLIC ACID [Concomitant]
     Indication: CARDIAC DISORDER
     Dosage: 81 MG, DAILY

REACTIONS (1)
  - INTRAOCULAR PRESSURE INCREASED [None]
